FAERS Safety Report 8789262 (Version 1)
Quarter: 2012Q4

REPORT INFORMATION
  Report Type: Spontaneous
  Country: US (occurrence: None)
  Receive Date: 20120910
  Receipt Date: 20120910
  Transmission Date: 20130627
  Serious: Yes (Hospitalization)
  Sender: FDA-Public Use
  Company Number: None

PATIENT
  Age: 85 Year
  Sex: Female
  Weight: 55 kg

DRUGS (10)
  1. ASPIRIN [Suspect]
     Indication: TIA
     Dosage: chronic
     Route: 048
  2. IBUPROFEN [Suspect]
  3. ALENDRONATE [Concomitant]
  4. AMLODIPINE [Concomitant]
  5. COLESEVELAM [Concomitant]
  6. INDAPAMIDE [Concomitant]
  7. INSULIN [Concomitant]
  8. OLMESARTAN [Concomitant]
  9. MELATONIN [Concomitant]
  10. MULTIVITAMIN [Concomitant]

REACTIONS (7)
  - Decreased appetite [None]
  - Diarrhoea [None]
  - Activities of daily living impaired [None]
  - Weight decreased [None]
  - Gastrointestinal haemorrhage [None]
  - Asthenia [None]
  - Abdominal pain [None]
